APPROVED DRUG PRODUCT: SODIUM CHLORIDE 3% IN PLASTIC CONTAINER
Active Ingredient: SODIUM CHLORIDE
Strength: 3GM/100ML
Dosage Form/Route: INJECTABLE;INJECTION
Application: A209476 | Product #001 | TE Code: AP
Applicant: FRESENIUS KABI USA LLC
Approved: Mar 13, 2019 | RLD: No | RS: No | Type: RX